FAERS Safety Report 6326797-1 (Version None)
Quarter: 2009Q3

REPORT INFORMATION
  Report Type: 
  Country: None (occurrence: None)
  Receive Date: 20090825
  Receipt Date: 20090817
  Transmission Date: 20100115
  Serious: Yes (Other)
  Sender: FDA-Public Use
  Company Number: AU-ROCHE-650501

PATIENT
  Sex: Female

DRUGS (1)
  1. TAMIFLU [Suspect]
     Route: 065
     Dates: start: 20090722, end: 20090723

REACTIONS (5)
  - AMNESIA [None]
  - CRYING [None]
  - MOOD ALTERED [None]
  - SUICIDAL IDEATION [None]
  - THINKING ABNORMAL [None]
